FAERS Safety Report 7184007-X (Version None)
Quarter: 2010Q4

REPORT INFORMATION
  Report Type: 
  Country: None (occurrence: None)
  Receive Date: 20101123
  Receipt Date: 20100824
  Transmission Date: 20110411
  Serious: No
  Sender: FDA-Public Use
  Company Number: 017725

PATIENT
  Sex: Male
  Weight: 118 kg

DRUGS (1)
  1. CIMZIA [Suspect]
     Indication: CROHN'S DISEASE
     Dosage: (200 MG 1X/4 WEEKS)
     Dates: start: 20080101, end: 20100720

REACTIONS (1)
  - CYSTITIS [None]
